FAERS Safety Report 4896548-6 (Version None)
Quarter: 2006Q1

REPORT INFORMATION
  Report Type: 
  Country: None (occurrence: None)
  Receive Date: 20060131
  Receipt Date: 20060110
  Transmission Date: 20060701
  Serious: Yes (Other)
  Sender: FDA-Public Use
  Company Number: 2006AP00168

PATIENT
  Age: 87 Year
  Sex: Female

DRUGS (8)
  1. ARIMIDEX [Suspect]
     Indication: BREAST CANCER
     Route: 048
     Dates: start: 20051109
  2. MS CONTIN [Suspect]
     Route: 048
  3. TAKEPRON [Concomitant]
     Route: 048
  4. SENNOSIDE [Concomitant]
     Route: 048
  5. ALDACTONE [Concomitant]
     Route: 048
  6. NORVASC [Concomitant]
     Route: 048
  7. VERAPAMIL [Concomitant]
  8. LASIX [Concomitant]

REACTIONS (2)
  - DEPRESSED LEVEL OF CONSCIOUSNESS [None]
  - HYPERAMMONAEMIA [None]
